FAERS Safety Report 11671438 (Version 1)
Quarter: 2015Q4

REPORT INFORMATION
  Report Type: Spontaneous
  Country: US (occurrence: US)
  Receive Date: 20151027
  Receipt Date: 20151027
  Transmission Date: 20160304
  Serious: No
  Sender: FDA-Public Use
  Company Number: US-ELI_LILLY_AND_COMPANY-US201006002424

PATIENT
  Age: 72 Year
  Sex: Male

DRUGS (1)
  1. FORTEO [Suspect]
     Active Substance: TERIPARATIDE
     Dosage: UNK, UNK
     Dates: start: 20080501

REACTIONS (7)
  - Dyspnoea [Unknown]
  - Lung disorder [Unknown]
  - Oropharyngeal pain [Unknown]
  - Dysphonia [Unknown]
  - Cough [Unknown]
  - Pneumonia [Recovered/Resolved]
  - Kyphosis [Unknown]

NARRATIVE: CASE EVENT DATE: 201002
